FAERS Safety Report 4941215-3 (Version None)
Quarter: 2006Q1

REPORT INFORMATION
  Report Type: 
  Country: None (occurrence: None)
  Receive Date: 20060310
  Receipt Date: 20060310
  Transmission Date: 20060701
  Serious: No
  Sender: FDA-Public Use
  Company Number: None

PATIENT
  Sex: Male
  Weight: 80.7403 kg

DRUGS (1)
  1. FLUOROURACIL [Suspect]
     Indication: RECTAL CANCER
     Dosage: 450MG  DAILY  IV
     Route: 042
     Dates: start: 20060109, end: 20060202

REACTIONS (2)
  - INFUSION RELATED REACTION [None]
  - PALMAR-PLANTAR ERYTHRODYSAESTHESIA SYNDROME [None]
